FAERS Safety Report 20869047 (Version 1)
Quarter: 2022Q2

REPORT INFORMATION
  Report Type: Spontaneous
  Country: US (occurrence: None)
  Receive Date: 20220524
  Receipt Date: 20220524
  Transmission Date: 20220721
  Serious: Yes (Other)
  Sender: FDA-Public Use
  Company Number: None

PATIENT
  Age: 67 Year
  Sex: Female
  Weight: 58.97 kg

DRUGS (20)
  1. VENLAFAXINE [Suspect]
     Active Substance: VENLAFAXINE HYDROCHLORIDE
     Indication: Major depression
     Dosage: FREQUENCY : DAILY;?
     Route: 048
     Dates: start: 199711, end: 20220401
  2. VENLAFAXINE [Suspect]
     Active Substance: VENLAFAXINE HYDROCHLORIDE
     Indication: Post-traumatic stress disorder
  3. VENLAFAXINE [Suspect]
     Active Substance: VENLAFAXINE HYDROCHLORIDE
     Indication: Anxiety
  4. VALTREX [Concomitant]
     Active Substance: VALACYCLOVIR HYDROCHLORIDE
  5. ALBUTEROL [Concomitant]
     Active Substance: ALBUTEROL
  6. CLINDAMYCIN PHOSPHATE GEL [Concomitant]
  7. BUPROPION [Concomitant]
     Active Substance: BUPROPION
  8. TRAMADOL [Concomitant]
     Active Substance: TRAMADOL
  9. VALIUM [Concomitant]
     Active Substance: DIAZEPAM
  10. METRONIDAZOLE USP GEL [Concomitant]
  11. TRAZODONE [Concomitant]
     Active Substance: TRAZODONE HYDROCHLORIDE
  12. GABAPENTIN [Concomitant]
     Active Substance: GABAPENTIN
  13. PERIDEX (MOUTH RINSE) [Concomitant]
  14. DIETARY SUPPLEMENT [Concomitant]
     Active Substance: DIETARY SUPPLEMENT
  15. VITAMIN B12 [Concomitant]
     Active Substance: CYANOCOBALAMIN
  16. VITAMIN D3 [Concomitant]
     Active Substance: CHOLECALCIFEROL
  17. Ca [Concomitant]
  18. C [Concomitant]
  19. PROBIOTICS NOS [Concomitant]
     Active Substance: PROBIOTICS NOS
  20. EXCEDRIN MIGRAINE RELIEF [Concomitant]

REACTIONS (9)
  - Balance disorder [None]
  - Fall [None]
  - Suicidal ideation [None]
  - Mood swings [None]
  - Insomnia [None]
  - Therapy interrupted [None]
  - Head injury [None]
  - Feeling abnormal [None]
  - Dry mouth [None]

NARRATIVE: CASE EVENT DATE: 20220401
